FAERS Safety Report 21568061 (Version 1)
Quarter: 2022Q4

REPORT INFORMATION
  Report Type: Spontaneous
  Country: US (occurrence: None)
  Receive Date: 20221107
  Receipt Date: 20221107
  Transmission Date: 20230113
  Serious: Yes (unspecified)
  Sender: FDA-Public Use
  Company Number: None

PATIENT
  Age: 87 Year
  Sex: Male
  Weight: 64.86 kg

DRUGS (1)
  1. ALLOPURINOL [Suspect]
     Active Substance: ALLOPURINOL
     Indication: Gout
     Dosage: 100 MG EVERY DAY PO
     Route: 048
     Dates: start: 20210908, end: 20220706

REACTIONS (3)
  - Rash [None]
  - Intestinal obstruction [None]
  - Incorrect dose administered [None]

NARRATIVE: CASE EVENT DATE: 20220629
